FAERS Safety Report 17093818 (Version 2)
Quarter: 2019Q4

REPORT INFORMATION
  Report Type: Spontaneous
  Country: RO (occurrence: RO)
  Receive Date: 20191129
  Receipt Date: 20191203
  Transmission Date: 20200122
  Serious: Yes (Death, Hospitalization, Other)
  Sender: FDA-Public Use
  Company Number: NVSC2019RO052193

PATIENT
  Age: 27 Year
  Sex: Female

DRUGS (2)
  1. INSULIN [Suspect]
     Active Substance: INSULIN NOS
     Indication: PANCREATIC NEUROENDOCRINE TUMOUR METASTATIC
     Dosage: UNK
     Route: 065
  2. OCTREOTIDE. [Suspect]
     Active Substance: OCTREOTIDE
     Indication: PANCREATIC NEUROENDOCRINE TUMOUR METASTATIC
     Dosage: UNK
     Route: 065

REACTIONS (14)
  - Oesophagitis [Unknown]
  - Paraplegia [Fatal]
  - Pancreatic carcinoma [Fatal]
  - Metastases to ovary [Fatal]
  - Gastrointestinal haemorrhage [Unknown]
  - Cortisol increased [Unknown]
  - Hyperplasia adrenal [Unknown]
  - Blood corticotrophin increased [Unknown]
  - Metastases to liver [Fatal]
  - Metastasis [Fatal]
  - Metastases to central nervous system [Fatal]
  - Barrett^s oesophagus [Unknown]
  - Blood potassium decreased [Unknown]
  - Oesophageal stenosis [Unknown]
